FAERS Safety Report 22101033 (Version 1)
Quarter: 2023Q1

REPORT INFORMATION
  Report Type: Spontaneous
  Country: US (occurrence: US)
  Receive Date: 20230316
  Receipt Date: 20230316
  Transmission Date: 20230418
  Serious: No
  Sender: FDA-Public Use
  Company Number: US-GSK-US2023AMR035757

PATIENT
  Sex: Male

DRUGS (2)
  1. ALBUTEROL SULFATE [Suspect]
     Active Substance: ALBUTEROL SULFATE
     Indication: Asthma
     Dosage: UNK,90 MCG, 18G/200 METERED
  2. ALBUTEROL SULFATE [Suspect]
     Active Substance: ALBUTEROL SULFATE
     Indication: Atrial fibrillation

REACTIONS (2)
  - Productive cough [Unknown]
  - Off label use [Unknown]
